FAERS Safety Report 21948958 (Version 4)
Quarter: 2023Q1

REPORT INFORMATION
  Report Type: Report from Study
  Country: US (occurrence: US)
  Receive Date: 20230203
  Receipt Date: 20230323
  Transmission Date: 20230418
  Serious: Yes (Life-Threatening, Hospitalization, Other)
  Sender: FDA-Public Use
  Company Number: US-002147023-NVSC2023US019638

PATIENT
  Sex: Female

DRUGS (3)
  1. SANDOSTATIN LAR DEPOT [Suspect]
     Active Substance: OCTREOTIDE ACETATE
     Indication: Product used for unknown indication
     Dosage: UNK
     Route: 065
  2. SANDOSTATIN LAR DEPOT [Suspect]
     Active Substance: OCTREOTIDE ACETATE
  3. SANDOSTATIN LAR DEPOT [Suspect]
     Active Substance: OCTREOTIDE ACETATE

REACTIONS (9)
  - Haemorrhage [Unknown]
  - Lung neoplasm malignant [Unknown]
  - Gastrointestinal haemorrhage [Unknown]
  - Gastrointestinal arteriovenous malformation [Unknown]
  - Chronic obstructive pulmonary disease [Unknown]
  - Sleep apnoea syndrome [Unknown]
  - Primary biliary cholangitis [Unknown]
  - Renal disorder [Unknown]
  - Retinal disorder [Unknown]
